FAERS Safety Report 8530815 (Version 3)
Quarter: 2013Q4

REPORT INFORMATION
  Report Type: Spontaneous
  Country: US (occurrence: None)
  Receive Date: 20120326
  Receipt Date: 20131226
  Transmission Date: 20140711
  Serious: Yes (Other)
  Sender: FDA-Public Use
  Company Number: PHEH2012US001593

PATIENT
  Age: 61 Year
  Sex: Female
  Weight: 78.6 kg

DRUGS (2)
  1. TASIGNA [Suspect]
     Indication: CHRONIC MYELOID LEUKAEMIA
     Dosage: 400 MG, BID, ORAL, 400 MG, DAILY, ORAL, 600 MG, DAILY, ORAL
     Route: 048
     Dates: start: 200902
  2. NORVASC [Concomitant]

REACTIONS (3)
  - Thrombocytopenia [None]
  - Chronic myeloid leukaemia [None]
  - Neoplasm malignant [None]
